FAERS Safety Report 8338527-2 (Version None)
Quarter: 2012Q2

REPORT INFORMATION
  Report Type: 
  Country: None (occurrence: None)
  Receive Date: 20120504
  Receipt Date: 20120426
  Transmission Date: 20120825
  Serious: Yes (Other)
  Sender: FDA-Public Use
  Company Number: US-ASTRAZENECA-2012SE27569

PATIENT
  Age: 60 Year
  Sex: Male
  Weight: 77.1 kg

DRUGS (5)
  1. ADVAIR DISKUS 100/50 [Concomitant]
  2. SINGULAIR [Concomitant]
     Indication: ASTHMA
  3. FORADIL [Concomitant]
     Indication: SYMPATHOMIMETIC EFFECT
  4. NASACORT [Concomitant]
     Indication: ALLERGIC SINUSITIS
     Dosage: 2 SPRAYS IN EACH NOS, QD
  5. PULMICORT FLEXHALER [Suspect]
     Indication: ASTHMA
     Dosage: ONE PUFF BID
     Route: 055
     Dates: start: 19980101

REACTIONS (3)
  - SUBDURAL HAEMATOMA [None]
  - SKULL FRACTURE [None]
  - ASTHMA [None]
